FAERS Safety Report 8696239 (Version 2)
Quarter: 2012Q4

REPORT INFORMATION
  Report Type: Spontaneous
  Country: US (occurrence: None)
  Receive Date: 20120716
  Receipt Date: 20121105
  Transmission Date: 20130627
  Serious: Yes (Death, Hospitalization)
  Sender: FDA-Public Use
  Company Number: UTC-020653

PATIENT
  Age: 55 Year
  Sex: Male

DRUGS (1)
  1. REMODULIN [Suspect]
     Indication: PULMONARY ARTERIAL HYPERTENSION
     Dosage: 14.76 UG/KG (0.01025 UG/KG, 1 IN 1 MIN) SUBCUTANEOUS
     Route: 058
     Dates: start: 20120214

REACTIONS (3)
  - Gastrointestinal haemorrhage [None]
  - Enteritis infectious [None]
  - International normalised ratio abnormal [None]
